FAERS Safety Report 7070923-6 (Version None)
Quarter: 2010Q4

REPORT INFORMATION
  Report Type: 
  Country: None (occurrence: None)
  Receive Date: 20101029
  Receipt Date: 20101022
  Transmission Date: 20110411
  Serious: Yes (Death, Hospitalization, Other)
  Sender: FDA-Public Use
  Company Number: JP-BAYER-200915153BYL

PATIENT
  Age: 71 Year
  Sex: Male
  Weight: 65 kg

DRUGS (10)
  1. NEXAVAR [Suspect]
     Indication: HEPATIC NEOPLASM MALIGNANT
     Dosage: TOTAL DAILY DOSE: 800 MG  UNIT DOSE: 200 MG
     Route: 048
     Dates: start: 20090729, end: 20090811
  2. NEXAVAR [Suspect]
     Dosage: UNIT DOSE: 200 MG
     Route: 048
     Dates: start: 20090811, end: 20091110
  3. PREDNISOLONE [Concomitant]
     Dosage: UNIT DOSE: 5 MG
     Route: 048
     Dates: start: 20060707
  4. OMEPRAL [Concomitant]
     Indication: PROPHYLAXIS AGAINST GASTROINTESTINAL ULCER
     Dosage: UNIT DOSE: 20 MG
     Route: 048
     Dates: start: 20060707
  5. MUCODYNE [Concomitant]
     Indication: SPUTUM RETENTION
     Dosage: UNIT DOSE: 500 MG
     Route: 048
     Dates: start: 20060707
  6. LOXONIN [Concomitant]
     Dosage: UNIT DOSE: 60 MG
     Route: 048
     Dates: start: 20060707
  7. LENDORMIN [Concomitant]
     Dosage: UNIT DOSE: 0.25 MG
     Route: 048
     Dates: start: 20090414
  8. NIZORAL [Concomitant]
     Indication: PROPHYLAXIS
     Route: 061
     Dates: start: 20090729
  9. HIRUDOID [Concomitant]
     Indication: PROPHYLAXIS
     Route: 061
     Dates: start: 20090729
  10. MIRACLID [Concomitant]
     Indication: PROPHYLAXIS
     Route: 042
     Dates: start: 20090907, end: 20090908

REACTIONS (6)
  - ASCITES [None]
  - HAEMOBILIA [None]
  - HEPATIC FAILURE [None]
  - HEPATIC NEOPLASM MALIGNANT [None]
  - PORTAL HYPERTENSION [None]
  - RASH [None]
